APPROVED DRUG PRODUCT: NORTRIPTYLINE HYDROCHLORIDE
Active Ingredient: NORTRIPTYLINE HYDROCHLORIDE
Strength: EQ 10MG BASE/5ML
Dosage Form/Route: SOLUTION;ORAL
Application: A077965 | Product #001
Applicant: TARO PHARMACEUTICAL INDUSTRIES LTD
Approved: Jun 20, 2006 | RLD: No | RS: No | Type: DISCN